FAERS Safety Report 8104485-9 (Version None)
Quarter: 2012Q1

REPORT INFORMATION
  Report Type: 
  Country: None (occurrence: None)
  Receive Date: 20120130
  Receipt Date: 20120116
  Transmission Date: 20120608
  Serious: Yes (Hospitalization)
  Sender: FDA-Public Use
  Company Number: PHHY2012IT004517

PATIENT
  Sex: Male

DRUGS (1)
  1. METHERGINE [Suspect]
     Dosage: 15 DROPS
     Route: 048
     Dates: start: 20111024, end: 20111024

REACTIONS (6)
  - CRYING [None]
  - AGITATION [None]
  - RHINITIS [None]
  - ABDOMINAL PAIN [None]
  - RESPIRATORY DISORDER [None]
  - WRONG DRUG ADMINISTERED [None]
